FAERS Safety Report 7635019-0 (Version None)
Quarter: 2011Q3

REPORT INFORMATION
  Report Type: 
  Country: None (occurrence: None)
  Receive Date: 20110718
  Receipt Date: 20110705
  Transmission Date: 20111222
  Serious: Yes (Other)
  Sender: FDA-Public Use
  Company Number: B0731437A

PATIENT
  Age: 51 Year
  Sex: Female

DRUGS (5)
  1. EFAVIRENZ [Suspect]
     Indication: ANTIRETROVIRAL THERAPY
  2. LAMIVUDINE(PEPFAR) [Suspect]
     Indication: ANTIRETROVIRAL THERAPY
  3. MULTI-VITAMIN [Concomitant]
  4. COTRIM [Concomitant]
  5. STAVUDINE [Suspect]
     Indication: ANTIRETROVIRAL THERAPY

REACTIONS (2)
  - IMMUNE RECONSTITUTION SYNDROME [None]
  - ACUTE FEBRILE NEUTROPHILIC DERMATOSIS [None]
